FAERS Safety Report 21767987 (Version 1)
Quarter: 2022Q4

REPORT INFORMATION
  Report Type: Spontaneous
  Country: US (occurrence: None)
  Receive Date: 20221222
  Receipt Date: 20221222
  Transmission Date: 20230113
  Serious: Yes (Death)
  Sender: FDA-Public Use
  Company Number: 2022A412102

PATIENT
  Age: 62 Year
  Sex: Male

DRUGS (3)
  1. IMFINZI [Suspect]
     Active Substance: DURVALUMAB
     Indication: Bladder cancer
     Dosage: 1500.0MG UNKNOWN
     Route: 042
  2. IMJUDO [Suspect]
     Active Substance: TREMELIMUMAB-ACTL
     Indication: Bladder cancer
     Dosage: 300.0MG UNKNOWN
     Route: 042
  3. BELINOSTAT [Concomitant]
     Active Substance: BELINOSTAT
     Route: 042

REACTIONS (2)
  - Colitis [Fatal]
  - Off label use [Recovered/Resolved]

NARRATIVE: CASE EVENT DATE: 20221119
